FAERS Safety Report 23904016 (Version 2)
Quarter: 2024Q2

REPORT INFORMATION
  Report Type: Spontaneous
  Country: KR (occurrence: KR)
  Receive Date: 20240527
  Receipt Date: 20240607
  Transmission Date: 20240715
  Serious: Yes (Hospitalization, Other)
  Sender: FDA-Public Use
  Company Number: KR-CELLTRION INC.-2024KR011669

PATIENT

DRUGS (23)
  1. INFLIXIMAB [Suspect]
     Active Substance: INFLIXIMAB
     Indication: Colitis ulcerative
     Dosage: 120 MILLIGRAM, 1/2 WEEKS
     Route: 058
     Dates: start: 20240201, end: 20240509
  2. INFLIXIMAB [Suspect]
     Active Substance: INFLIXIMAB
     Dosage: 120 MG, 1 PEN 1/2 WEEKS
     Route: 058
     Dates: start: 20240319
  3. DIETARY SUPPLEMENT\HERBALS\MILK THISTLE [Concomitant]
     Active Substance: MILK THISTLE
     Indication: Liver function test increased
     Dosage: 140 MILLIGRAM, THREE TIMES A DAY
     Route: 048
     Dates: start: 20240326, end: 20240515
  4. DIETARY SUPPLEMENT\HERBALS\MILK THISTLE [Concomitant]
     Active Substance: MILK THISTLE
     Dosage: 140 MILLIGRAM, TID
     Route: 048
     Dates: start: 20240328
  5. PENNEL [ALLIUM SATIVUM OIL] [Concomitant]
     Indication: Liver function test increased
     Dosage: 25/50 MG, THREE TIMES A DAY
     Route: 048
     Dates: start: 20240326, end: 20240528
  6. PENNEL [ALLIUM SATIVUM OIL] [Concomitant]
     Indication: Abdominal pain
     Dosage: 25/50 MG, TID
     Route: 048
     Dates: start: 20240517, end: 20240529
  7. ORAFANG [Concomitant]
     Indication: Premedication
     Dosage: 28T/BOX, QID
     Route: 048
     Dates: start: 20240514, end: 20240515
  8. NEXIUM I.V. [Concomitant]
     Active Substance: ESOMEPRAZOLE SODIUM
     Indication: Gastrointestinal disorder prophylaxis
     Dosage: 40 MG, QD
     Route: 042
     Dates: start: 20240515, end: 20240518
  9. GASOCOL [Concomitant]
     Indication: Abdominal pain
     Dosage: 200MG/10ML, BID
     Route: 048
     Dates: start: 20240517, end: 20240519
  10. FLOSPAN [Concomitant]
     Indication: Abdominal pain
     Dosage: 80 MG, TID
     Route: 048
     Dates: start: 20240517, end: 20240529
  11. POLYBUTINE [TRIMEBUTINE] [Concomitant]
     Indication: Abdominal pain
     Dosage: 300 MG, QD
     Route: 048
     Dates: start: 20240521, end: 20240529
  12. ERDOSTEINE [Concomitant]
     Active Substance: ERDOSTEINE
     Indication: Abdominal pain
     Dosage: 300 MG, TID
     Route: 048
     Dates: start: 20240517, end: 20240529
  13. L-TIRIZINE [Concomitant]
     Indication: Abdominal pain
     Dosage: 5 MG, TID
     Route: 048
     Dates: start: 20240517, end: 20240529
  14. CEFDITOREN PIVOXIL [Concomitant]
     Active Substance: CEFDITOREN PIVOXIL
     Indication: Oropharyngeal pain
     Dosage: 100 MG, TID
     Route: 048
     Dates: start: 20240521, end: 20240529
  15. K CONTIN CONTINUS [Concomitant]
     Indication: Blood potassium decreased
     Dosage: 600 MG, TID
     Route: 048
     Dates: start: 20240521, end: 20240529
  16. BENZETHONIUM CHLORIDE [Concomitant]
     Active Substance: BENZETHONIUM CHLORIDE
     Indication: Oropharyngeal pain
     Dosage: 1 GARGLING, TID
     Dates: start: 20240521, end: 20240529
  17. SYNERJET [Concomitant]
     Indication: Oropharyngeal pain
     Dosage: 1 TAB , BID
     Route: 048
     Dates: start: 20240521
  18. TACENOL [Concomitant]
     Indication: Oropharyngeal pain
     Dosage: 1 TAB, QD
     Route: 048
     Dates: start: 20240520, end: 20240520
  19. CAROL-F [Concomitant]
     Indication: Oropharyngeal pain
     Dosage: 1 TAB, QD
     Route: 048
     Dates: start: 20240521, end: 20240521
  20. TANDOL [Concomitant]
     Indication: Myalgia
     Dosage: 1 AMP, PRN
     Route: 042
     Dates: start: 20240515, end: 20240519
  21. CHLORPHENIRAMINE MALEATE HUONS [Concomitant]
     Indication: Pruritus
     Dosage: 1 AMP, QD
     Route: 042
     Dates: start: 20240518, end: 20240518
  22. ALVERIX [Concomitant]
     Indication: Abdominal pain
     Dosage: 1 CAP, BID
     Route: 048
     Dates: start: 20240329
  23. FLOSPAN D [Concomitant]
     Indication: Abdominal pain
     Dosage: 1 TAB, TID
     Route: 048
     Dates: start: 20240329

REACTIONS (1)
  - Colitis ulcerative [Recovered/Resolved]

NARRATIVE: CASE EVENT DATE: 20240509
